FAERS Safety Report 10366037 (Version 2)
Quarter: 2014Q3

REPORT INFORMATION
  Report Type: Report from Study
  Country: BE (occurrence: BE)
  Receive Date: 20140806
  Receipt Date: 20140813
  Transmission Date: 20150326
  Serious: Yes (Hospitalization)
  Sender: FDA-Public Use
  Company Number: BE-VIIV HEALTHCARE LIMITED-B1018747A

PATIENT
  Age: 42 Year
  Sex: Female
  Weight: 46 kg

DRUGS (9)
  1. DOLUTEGRAVIR [Suspect]
     Active Substance: DOLUTEGRAVIR
     Indication: HIV INFECTION
     Dosage: 50MG TWICE PER DAY
     Route: 048
     Dates: start: 20140612, end: 20140724
  2. PREZISTA [Concomitant]
     Active Substance: DARUNAVIR ETHANOLATE
     Indication: HIV INFECTION
     Dosage: 600MG TWICE PER DAY
     Route: 048
     Dates: start: 20011113, end: 20140724
  3. INTELENCE [Concomitant]
     Active Substance: ETRAVIRINE
     Indication: HIV INFECTION
     Dosage: 200MG TWICE PER DAY
     Route: 048
     Dates: start: 20140612, end: 20140724
  4. INTELENCE [Concomitant]
     Active Substance: ETRAVIRINE
     Dosage: 200MG TWICE PER DAY
     Dates: start: 20140731
  5. ESCITALOPRAM [Concomitant]
     Active Substance: ESCITALOPRAM OXALATE
     Indication: DEPRESSION
     Dosage: 20MG PER DAY
     Dates: start: 20140508, end: 20140724
  6. NORVIR [Concomitant]
     Active Substance: RITONAVIR
     Indication: HIV INFECTION
     Dosage: 100MG TWICE PER DAY
     Dates: start: 20000615, end: 20140724
  7. NORVIR [Concomitant]
     Active Substance: RITONAVIR
     Dosage: 100MG TWICE PER DAY
     Route: 048
     Dates: start: 20140731
  8. PREZISTA [Concomitant]
     Active Substance: DARUNAVIR ETHANOLATE
     Dosage: 600MG TWICE PER DAY
     Dates: start: 20140731
  9. DOLUTEGRAVIR [Suspect]
     Active Substance: DOLUTEGRAVIR
     Dosage: 50MG TWICE PER DAY
     Route: 048
     Dates: start: 20140731

REACTIONS (2)
  - Hepatitis acute [Recovered/Resolved]
  - Thrombocytopenia [Recovered/Resolved]

NARRATIVE: CASE EVENT DATE: 20140715
